FAERS Safety Report 15488686 (Version 2)
Quarter: 2019Q4

REPORT INFORMATION
  Report Type: Report from Study
  Country: JP (occurrence: JP)
  Receive Date: 20181011
  Receipt Date: 20191018
  Transmission Date: 20200122
  Serious: Yes (Hospitalization)
  Sender: FDA-Public Use
  Company Number: JP-VIFOR (INTERNATIONAL) INC.-VIT-2017-08816

PATIENT
  Age: 45 Year
  Sex: Female
  Weight: 92 kg

DRUGS (25)
  1. DEPAS [Concomitant]
     Route: 048
  2. PLETAAL [Concomitant]
     Active Substance: CILOSTAZOL
     Route: 048
  3. NEXIUM [Concomitant]
     Active Substance: ESOMEPRAZOLE MAGNESIUM
     Route: 048
  4. NESP [Concomitant]
     Active Substance: DARBEPOETIN ALFA
     Dates: end: 20170109
  5. DOPS [Concomitant]
     Active Substance: DROXIDOPA
     Route: 048
  6. ROCALTROL [Concomitant]
     Active Substance: CALCITRIOL
     Dates: start: 20170705
  7. THEO-DUR [Concomitant]
     Active Substance: THEOPHYLLINE ANHYDROUS
     Route: 048
     Dates: start: 20171002, end: 20171022
  8. GASMOTIN [Concomitant]
     Active Substance: MOSAPRIDE CITRATE
     Route: 048
  9. REGPARA [Concomitant]
     Active Substance: CINACALCET HYDROCHLORIDE
     Route: 048
  10. ROCALTROL [Concomitant]
     Active Substance: CALCITRIOL
  11. FLOMAX [Concomitant]
     Active Substance: TAMSULOSIN HYDROCHLORIDE
     Route: 048
     Dates: start: 20171107, end: 20171109
  12. FEBURIC [Concomitant]
     Active Substance: FEBUXOSTAT
     Route: 048
  13. LUNESTA [Concomitant]
     Active Substance: ESZOPICLONE
     Route: 048
  14. LYRICA [Concomitant]
     Active Substance: PREGABALIN
     Route: 048
  15. HOKUNALIN TAPE [Concomitant]
     Active Substance: TULOBUTEROL
     Route: 050
     Dates: start: 20161223, end: 20161230
  16. ROCALTROL [Concomitant]
     Active Substance: CALCITRIOL
     Dates: end: 20170703
  17. VELPHORO [Suspect]
     Active Substance: FERRIC OXYHYDROXIDE
     Indication: HYPERPHOSPHATAEMIA
     Route: 048
     Dates: start: 20161205
  18. MUCOSTA [Concomitant]
     Active Substance: REBAMIPIDE
     Route: 048
  19. FOSRENOL [Concomitant]
     Active Substance: LANTHANUM CARBONATE
     Indication: HYPERPHOSPHATAEMIA
     Route: 048
  20. SEROQUEL [Concomitant]
     Active Substance: QUETIAPINE FUMARATE
     Route: 048
  21. RISUMIC [Concomitant]
     Active Substance: AMEZINIUM METILSULFATE
     Route: 048
  22. NESP [Concomitant]
     Active Substance: DARBEPOETIN ALFA
     Dates: start: 20170116, end: 20170123
  23. RELVAR ELLIPTA [Concomitant]
     Active Substance: FLUTICASONE FUROATE\VILANTEROL TRIFENATATE
     Route: 050
     Dates: start: 20171025, end: 20171106
  24. AMITIZA [Concomitant]
     Active Substance: LUBIPROSTONE
     Route: 048
  25. FLOMAX [Concomitant]
     Active Substance: TAMSULOSIN HYDROCHLORIDE
     Indication: INFECTION PROPHYLAXIS
     Route: 048
     Dates: start: 20170602, end: 20170605

REACTIONS (4)
  - Polycythaemia [Recovered/Resolved]
  - Shunt occlusion [Recovered/Resolved]
  - Shunt occlusion [Recovering/Resolving]
  - Haemoglobin increased [Recovered/Resolved]

NARRATIVE: CASE EVENT DATE: 20170109
